FAERS Safety Report 12385417 (Version 2)
Quarter: 2016Q3

REPORT INFORMATION
  Report Type: Spontaneous
  Country: US (occurrence: US)
  Receive Date: 20160519
  Receipt Date: 20160720
  Transmission Date: 20161109
  Serious: Yes (Other)
  Sender: FDA-Public Use
  Company Number: US-BEH-2016062750

PATIENT
  Age: 60 Year
  Sex: Male
  Weight: 61.69 kg

DRUGS (18)
  1. VENTOLIN HFA [Concomitant]
     Active Substance: ALBUTEROL SULFATE
  2. FERROUS SULFATE. [Concomitant]
     Active Substance: FERROUS SULFATE
  3. OXYCODONE [Concomitant]
     Active Substance: OXYCODONE
  4. ATORVASTATIN [Concomitant]
     Active Substance: ATORVASTATIN
  5. ZYRTEC [Concomitant]
     Active Substance: CETIRIZINE HYDROCHLORIDE
  6. NEXIUM [Concomitant]
     Active Substance: ESOMEPRAZOLE MAGNESIUM
  7. TRAMADOL. [Concomitant]
     Active Substance: TRAMADOL
  8. HIZENTRA [Suspect]
     Active Substance: HUMAN IMMUNOGLOBULIN G
     Indication: SELECTIVE IGG SUBCLASS DEFICIENCY
  9. DALIRESP [Concomitant]
     Active Substance: ROFLUMILAST
  10. FUROSEMIDE. [Concomitant]
     Active Substance: FUROSEMIDE
  11. HIZENTRA [Suspect]
     Active Substance: HUMAN IMMUNOGLOBULIN G
     Indication: IMMUNODEFICIENCY COMMON VARIABLE
     Dosage: 8 G, QW
     Route: 058
     Dates: start: 201605
  12. VITAMIN D [Concomitant]
     Active Substance: CHOLECALCIFEROL
  13. GABAPENTIN. [Concomitant]
     Active Substance: GABAPENTIN
  14. NASONEX [Concomitant]
     Active Substance: MOMETASONE FUROATE
  15. ASPIRIN. [Concomitant]
     Active Substance: ASPIRIN
  16. LISINOPRIL. [Concomitant]
     Active Substance: LISINOPRIL
  17. BUPROPION XL [Concomitant]
     Active Substance: BUPROPION
  18. IPRATROPIUM-ALBUTEROL [Concomitant]
     Active Substance: ALBUTEROL\IPRATROPIUM

REACTIONS (3)
  - Infusion site swelling [Unknown]
  - Infusion site pain [Unknown]
  - Pneumonia [Unknown]

NARRATIVE: CASE EVENT DATE: 20160524
